FAERS Safety Report 6195798-9 (Version None)
Quarter: 2009Q2

REPORT INFORMATION
  Report Type: 
  Country: None (occurrence: None)
  Receive Date: 20090515
  Receipt Date: 20090429
  Transmission Date: 20091009
  Serious: Yes (Hospitalization)
  Sender: FDA-Public Use
  Company Number: E7272-00018-SPO-US

PATIENT
  Sex: Male

DRUGS (1)
  1. ONTAK [Suspect]
     Indication: NEOPLASM
     Dosage: INTRAVENOUS
     Route: 042

REACTIONS (3)
  - INFECTION [None]
  - ONCOLOGIC COMPLICATION [None]
  - THERMAL BURN [None]
